FAERS Safety Report 4596125-0 (Version None)
Quarter: 2005Q1

REPORT INFORMATION
  Report Type: 
  Country: None (occurrence: None)
  Receive Date: 20050225
  Receipt Date: 20050210
  Transmission Date: 20050727
  Serious: Yes (Hospitalization)
  Sender: FDA-Public Use
  Company Number: 04-000570

PATIENT
  Age: 63 Year
  Sex: Female

DRUGS (5)
  1. ESTRACE [Suspect]
     Dosage: VAGINAL
     Route: 067
     Dates: start: 19990101, end: 19990201
  2. PREMPRO [Suspect]
     Indication: HORMONE REPLACEMENT THERAPY
     Dates: start: 19970301, end: 19990101
  3. PREMPRO [Suspect]
     Indication: HORMONE REPLACEMENT THERAPY
     Dates: start: 19990301, end: 20021101
  4. MEDROXYPROGESTERONE ACETATE [Suspect]
     Indication: HORMONE REPLACEMENT THERAPY
     Dates: start: 19970201, end: 19970301
  5. PREMARIN [Suspect]
     Indication: HORMONE REPLACEMENT THERAPY
     Dates: start: 19800101, end: 19970101

REACTIONS (15)
  - CHEST PAIN [None]
  - DEEP VEIN THROMBOSIS [None]
  - DIZZINESS [None]
  - ELECTROCARDIOGRAM ABNORMAL [None]
  - FLUID OVERLOAD [None]
  - LIMB DISCOMFORT [None]
  - NAUSEA [None]
  - PAIN [None]
  - POST PROCEDURAL DISCOMFORT [None]
  - PULMONARY EMBOLISM [None]
  - PYREXIA [None]
  - RALES [None]
  - SQUAMOUS CELL CARCINOMA OF THE CERVIX [None]
  - VAGINAL HAEMORRHAGE [None]
  - VOMITING [None]
